FAERS Safety Report 13650090 (Version 1)
Quarter: 2017Q2

REPORT INFORMATION
  Report Type: Spontaneous
  Country: US (occurrence: US)
  Receive Date: 20170614
  Receipt Date: 20170614
  Transmission Date: 20170830
  Serious: No
  Sender: FDA-Public Use
  Company Number: US-PFIZER INC-2017256421

PATIENT
  Age: 74 Year
  Sex: Female

DRUGS (1)
  1. DOXEPIN HCL [Suspect]
     Active Substance: DOXEPIN HYDROCHLORIDE
     Dosage: UNK

REACTIONS (4)
  - Muscle spasms [Unknown]
  - Drug hypersensitivity [Unknown]
  - Myalgia [Unknown]
  - Visual acuity reduced [Unknown]
